FAERS Safety Report 8185108 (Version 3)
Quarter: 2017Q1

REPORT INFORMATION
  Report Type: Report from Study
  Country: US (occurrence: US)
  Receive Date: 20111018
  Receipt Date: 20170210
  Transmission Date: 20170429
  Serious: Yes (Other)
  Sender: FDA-Public Use
  Company Number: US-ASTRAZENECA-2010SE48545

PATIENT
  Age: 61 Year
  Sex: Female
  Weight: 63.5 kg

DRUGS (9)
  1. NEXIUM [Suspect]
     Active Substance: ESOMEPRAZOLE MAGNESIUM
     Indication: DYSPEPSIA
     Dosage: CANADIAN NEXIUM GENERIC
     Route: 048
     Dates: start: 201612
  2. SYMBICORT [Suspect]
     Active Substance: BUDESONIDE\FORMOTEROL FUMARATE DIHYDRATE
     Dosage: 80/4.5 MCG 1 PUFF QD
     Route: 055
  3. NEXIUM [Suspect]
     Active Substance: ESOMEPRAZOLE MAGNESIUM
     Indication: DYSPEPSIA
     Route: 048
  4. NEXIUM [Suspect]
     Active Substance: ESOMEPRAZOLE MAGNESIUM
     Indication: DYSPEPSIA
     Dosage: CANADIAN NEXIUM GENERIC
     Route: 048
     Dates: start: 201612
  5. NEXIUM [Suspect]
     Active Substance: ESOMEPRAZOLE MAGNESIUM
     Indication: DYSPEPSIA
     Route: 048
  6. NEXIUM [Suspect]
     Active Substance: ESOMEPRAZOLE MAGNESIUM
     Indication: DYSPEPSIA
     Dosage: CANADIAN NEXIUM, NEKSIM (40 MG, DAILY)
     Route: 048
  7. SYMBICORT [Suspect]
     Active Substance: BUDESONIDE\FORMOTEROL FUMARATE DIHYDRATE
     Dosage: 160/4.5 MCG 1PUFF DAILY
     Route: 055
  8. CHEMOTHERAPY [Suspect]
     Active Substance: UNSPECIFIED INGREDIENT
     Indication: COLON CANCER
     Route: 065
  9. NEXIUM [Suspect]
     Active Substance: ESOMEPRAZOLE MAGNESIUM
     Indication: DYSPEPSIA
     Dosage: CANADIAN NEXIUM, NEKSIM (40 MG, DAILY)
     Route: 048

REACTIONS (9)
  - Intentional product misuse [Unknown]
  - Gastric pH decreased [Recovered/Resolved]
  - Type 2 diabetes mellitus [Unknown]
  - Herpes zoster [Unknown]
  - Gastric disorder [Not Recovered/Not Resolved]
  - Colon cancer recurrent [Recovered/Resolved]
  - Feeling abnormal [Unknown]
  - Colon cancer [Recovered/Resolved]
  - Drug ineffective [Unknown]

NARRATIVE: CASE EVENT DATE: 2008
